FAERS Safety Report 10090312 (Version 1)
Quarter: 2014Q2

REPORT INFORMATION
  Report Type: Spontaneous
  Country: CN (occurrence: CN)
  Receive Date: 20140421
  Receipt Date: 20140421
  Transmission Date: 20141212
  Serious: Yes (Hospitalization, Disabling)
  Sender: FDA-Public Use
  Company Number: CN-SA-2014SA046547

PATIENT
  Age: 69 Year
  Sex: Female
  Weight: 48 kg

DRUGS (1)
  1. COAPROVEL [Suspect]
     Indication: ESSENTIAL HYPERTENSION
     Route: 048
     Dates: start: 20130711, end: 20130712

REACTIONS (4)
  - Polyuria [Recovering/Resolving]
  - Pollakiuria [Recovering/Resolving]
  - Hypokalaemia [Recovering/Resolving]
  - Fatigue [Recovering/Resolving]
